FAERS Safety Report 9785574 (Version 2)
Quarter: 2013Q4

REPORT INFORMATION
  Report Type: Report from Study
  Country: US (occurrence: US)
  Receive Date: 20131227
  Receipt Date: 20131227
  Transmission Date: 20140711
  Serious: No
  Sender: FDA-Public Use
  Company Number: PHEH2013US006508

PATIENT
  Age: 60 Year
  Sex: Female

DRUGS (20)
  1. TASIGNA [Suspect]
     Indication: CHRONIC MYELOID LEUKAEMIA
     Dosage: 300 MG, BID
     Route: 048
     Dates: start: 20100303
  2. TASIGNA [Suspect]
     Dosage: 300 MG, BID
     Route: 048
     Dates: start: 201202, end: 20131011
  3. METOPROLOL SUCCINATE [Concomitant]
     Dosage: 25 MG, DAILY
     Route: 048
     Dates: start: 20131213, end: 20131213
  4. HORMONES NOS [Concomitant]
     Dosage: UNK
     Route: 048
     Dates: start: 20131213, end: 20131213
  5. SYNTHROID [Concomitant]
     Dosage: 75 UG, DAILY
     Route: 048
     Dates: start: 20131213, end: 20131213
  6. SPIRONOLACTONE [Concomitant]
     Dosage: 25 MG, DAILY
     Route: 048
     Dates: start: 20131213, end: 20131213
  7. MONTELUKAST [Concomitant]
     Dosage: 10 MG, DAILY
     Route: 048
     Dates: start: 20131213, end: 20131213
  8. ALBUTEROL [Concomitant]
     Dosage: UNK
     Route: 055
     Dates: start: 20131213, end: 20131213
  9. ALPRAZOLAM [Concomitant]
     Dosage: 1 MG, TID AS NEEDED
     Route: 048
     Dates: start: 20131213, end: 20131213
  10. POLYETHYLENE GLYCOL [Concomitant]
     Dosage: 17 G, DAILY AS NEEDED
     Route: 048
     Dates: start: 20131213, end: 20131213
  11. DULOXETINE [Concomitant]
     Dosage: 60 MG, DAILY
     Route: 048
     Dates: start: 20131213, end: 20131213
  12. OXYCODONE [Concomitant]
     Dosage: 15 MG, PRN
     Dates: start: 20131213, end: 20131213
  13. LIDOCAINE [Concomitant]
     Dosage: 5 %, DAILY
     Route: 061
     Dates: start: 20131213, end: 20131213
  14. OMEPRAZOLE [Concomitant]
     Dosage: 20 MG, DAILY
     Route: 048
     Dates: start: 20131213, end: 20131213
  15. VITAMIN D3 [Concomitant]
     Dosage: 2000 U, DAILY
     Route: 048
     Dates: start: 20131213, end: 20131213
  16. COENZYME Q10 [Concomitant]
     Dosage: 200 MG, DAILY
     Route: 048
     Dates: start: 20131213, end: 20131213
  17. METFORMIN [Concomitant]
     Dosage: UNK
     Route: 048
     Dates: start: 20131213, end: 20131213
  18. CETRIZINE [Concomitant]
     Dosage: UNK
     Route: 048
     Dates: start: 20131213, end: 20131213
  19. SPIRIVA [Concomitant]
     Dosage: UNK
     Dates: start: 20131213, end: 20131213
  20. OXYMORPHONE [Concomitant]
     Dosage: UNK
     Route: 048
     Dates: start: 20131213, end: 20131213

REACTIONS (2)
  - Headache [Unknown]
  - Abdominal pain [Recovering/Resolving]
